FAERS Safety Report 16937086 (Version 1)
Quarter: 2019Q4

REPORT INFORMATION
  Report Type: Report from Study
  Country: KR (occurrence: KR)
  Receive Date: 20191018
  Receipt Date: 20191018
  Transmission Date: 20200122
  Serious: Yes (Hospitalization)
  Sender: FDA-Public Use
  Company Number: KR-PFIZER INC-2019426518

PATIENT
  Age: 67 Year
  Sex: Male
  Weight: 70 kg

DRUGS (9)
  1. MEGESTROL ACETATE. [Concomitant]
     Active Substance: MEGESTROL ACETATE
     Indication: PROPHYLAXIS
     Dosage: EVERY 2 DAYS
     Route: 048
     Dates: start: 20190808
  2. ZOLPIDEM [Concomitant]
     Active Substance: ZOLPIDEM TARTRATE
     Indication: PROPHYLAXIS
     Dosage: UNK
     Route: 048
     Dates: start: 20190830
  3. CHLORPROMAZINE. [Concomitant]
     Active Substance: CHLORPROMAZINE
     Indication: PROPHYLAXIS
     Dosage: 0.25 TABLET , 1X/DAY
     Route: 048
     Dates: start: 20190824
  4. PACLITAXEL. [Suspect]
     Active Substance: PACLITAXEL
     Dosage: 120.25 MG, UNK
     Dates: start: 20190903
  5. AVELUMAB [Suspect]
     Active Substance: AVELUMAB
     Dosage: 700 MG, UNK
     Route: 042
     Dates: start: 20190903
  6. ATORVASTATIN [Concomitant]
     Active Substance: ATORVASTATIN
     Indication: PRINZMETAL ANGINA
     Dosage: UNK, 1X/DAY
     Route: 048
     Dates: start: 20120517
  7. PACLITAXEL. [Suspect]
     Active Substance: PACLITAXEL
     Indication: NEOPLASM MALIGNANT
     Dosage: 148 MG, UNK
     Dates: start: 20190807
  8. ACETYLSALICYLIC ACID [Concomitant]
     Active Substance: ASPIRIN
     Indication: PRINZMETAL ANGINA
     Dosage: UNK, 1X/DAY
     Route: 048
     Dates: start: 20040510
  9. AVELUMAB [Suspect]
     Active Substance: AVELUMAB
     Indication: HEPATIC ANGIOSARCOMA
     Dosage: 705 MG, UNK
     Route: 042
     Dates: start: 20190807

REACTIONS (1)
  - Metabolic acidosis [Recovered/Resolved with Sequelae]

NARRATIVE: CASE EVENT DATE: 20190913
